FAERS Safety Report 9505924 (Version 1)
Quarter: 2013Q1

REPORT INFORMATION
  Report Type: Spontaneous
  Country: US (occurrence: None)
  Receive Date: 20130212
  Receipt Date: 20130212
  Transmission Date: 20140127
  Serious: Yes (Other)
  Sender: FDA-Public Use
  Company Number: 2012SCPR004386

PATIENT
  Sex: Female

DRUGS (1)
  1. BUPROPION HCI XL [Suspect]
     Indication: DEPRESSION
     Dosage: 3 TABLETS, EVERY MORNING
     Route: 048
     Dates: start: 2011

REACTIONS (3)
  - Generalised oedema [None]
  - Influenza like illness [None]
  - Pruritus [None]
